FAERS Safety Report 9690939 (Version 1)
Quarter: 2013Q4

REPORT INFORMATION
  Report Type: Spontaneous
  Country: US (occurrence: US)
  Receive Date: 20131115
  Receipt Date: 20131115
  Transmission Date: 20140711
  Serious: Yes (Other)
  Sender: FDA-Public Use
  Company Number: US-PFIZER INC-2013325034

PATIENT
  Age: 52 Year
  Sex: Female
  Weight: 68.03 kg

DRUGS (9)
  1. CHANTIX [Suspect]
     Indication: SMOKING CESSATION THERAPY
     Dosage: UNK
     Route: 048
  2. VISTARIL [Suspect]
     Indication: DEPRESSION
     Dosage: 50 MG, 2X/DAY
     Route: 048
  3. VISTARIL [Suspect]
     Dosage: 25 MG, UNK
     Route: 048
  4. MECLIZINE [Suspect]
     Indication: DEPRESSION
     Dosage: 2 DF, 1X/DAY
     Route: 048
  5. MECLIZINE [Suspect]
     Dosage: UNK
     Route: 048
  6. PAXIL [Suspect]
     Indication: DEPRESSION
     Dosage: 50 MG, 2X/DAY
     Route: 048
  7. PAXIL [Suspect]
     Dosage: 25 MG, UNK
     Route: 048
  8. TRAZODONE [Concomitant]
     Indication: DEPRESSION
     Dosage: 2 DF, 2X/DAY
     Route: 048
  9. METOPROLOL [Concomitant]
     Indication: HYPERTENSION
     Dosage: 25 MG, 1X/DAY

REACTIONS (7)
  - Suicidal ideation [Recovered/Resolved]
  - Abnormal dreams [Recovered/Resolved]
  - Nausea [Recovered/Resolved]
  - Dry mouth [Recovered/Resolved]
  - Anxiety [Unknown]
  - Fatigue [Unknown]
  - Off label use [Unknown]
